FAERS Safety Report 16579855 (Version 1)
Quarter: 2019Q3

REPORT INFORMATION
  Report Type: Spontaneous
  Country: CL (occurrence: CL)
  Receive Date: 20190716
  Receipt Date: 20190716
  Transmission Date: 20191004
  Serious: Yes (Other)
  Sender: FDA-Public Use
  Company Number: CL-PFIZER INC-2019300834

PATIENT
  Age: 20 Year
  Sex: Female
  Weight: 48 kg

DRUGS (5)
  1. HUMAN PAPILLOMA VACCINE [Concomitant]
     Active Substance: HUMAN PAPILLOMAVIRUS VACCINE
     Dosage: 3 DF, UNK
  2. SAYANA [Suspect]
     Active Substance: MEDROXYPROGESTERONE
     Indication: CONTRACEPTION
  3. QUETIAPINE. [Concomitant]
     Active Substance: QUETIAPINE
  4. RAVOTRIL [Concomitant]
     Active Substance: CLONAZEPAM
     Dosage: UNK UNK, AS NEEDED
     Dates: start: 201603
  5. ESCITALOPRAM [Concomitant]
     Active Substance: ESCITALOPRAM OXALATE

REACTIONS (11)
  - Respiratory distress [Recovered/Resolved]
  - Hypersensitivity [Recovered/Resolved]
  - Pruritus generalised [Recovered/Resolved]
  - Ear discomfort [Recovered/Resolved]
  - Gingival pain [Recovered/Resolved]
  - Dysmenorrhoea [Recovered/Resolved]
  - Amenorrhoea [Recovered/Resolved]
  - Urticaria [Recovered/Resolved]
  - Therapeutic response unexpected [Unknown]
  - Vomiting [Recovered/Resolved]
  - Acne [Unknown]

NARRATIVE: CASE EVENT DATE: 20190606
